FAERS Safety Report 4873837-2 (Version None)
Quarter: 2005Q4

REPORT INFORMATION
  Report Type: 
  Country: None (occurrence: None)
  Receive Date: 20051201
  Receipt Date: 20050801
  Transmission Date: 20060501
  Serious: No
  Sender: FDA-Public Use
  Company Number: 2005PV000977

PATIENT
  Age: 34 Year
  Sex: Female
  Weight: 77.1115 kg

DRUGS (11)
  1. BYETTA [Suspect]
     Indication: DIABETES MELLITUS NON-INSULIN-DEPENDENT
     Dosage: 5 MCG; BID; SC
     Route: 058
     Dates: start: 20050727
  2. PRANDIN [Concomitant]
  3. METFORMIN [Concomitant]
  4. ASCORBIC ACID [Concomitant]
  5. CALCIUM GLUCONATE [Concomitant]
  6. VITAMIN E [Concomitant]
  7. ACIDOPHILUS ^ZYMA^ [Concomitant]
  8. FOLIC ACID [Concomitant]
  9. FLAXSEED OIL [Concomitant]
  10. ASPIRIN [Concomitant]
  11. MULTIVITAMIN [Concomitant]

REACTIONS (2)
  - FATIGUE [None]
  - SOMNOLENCE [None]
